FAERS Safety Report 20551376 (Version 1)
Quarter: 2022Q1

REPORT INFORMATION
  Report Type: Spontaneous
  Country: GB (occurrence: GB)
  Receive Date: 20220304
  Receipt Date: 20220304
  Transmission Date: 20220423
  Serious: Yes (Hospitalization, Other)
  Sender: FDA-Public Use
  Company Number: GB-MHRA-MED-202202211241599440-VVB1Y

PATIENT
  Age: 31 Year
  Sex: Female

DRUGS (1)
  1. PROPRANOLOL [Suspect]
     Active Substance: PROPRANOLOL HYDROCHLORIDE
     Indication: Anxiety
     Dosage: 40MG 1-3 TIMES A DAY ; ;
     Route: 065
     Dates: start: 20220220, end: 20220221

REACTIONS (8)
  - Adverse drug reaction [Not Recovered/Not Resolved]
  - Blood pressure increased [Unknown]
  - Pharyngeal swelling [Recovering/Resolving]
  - Dyspnoea [Recovering/Resolving]
  - Adverse drug reaction [Recovering/Resolving]
  - Adverse drug reaction [Recovering/Resolving]
  - Lip dry [Recovered/Resolved]
  - Adverse drug reaction [Recovered/Resolved]

NARRATIVE: CASE EVENT DATE: 20220220
